FAERS Safety Report 8453347 (Version 4)
Quarter: 2012Q4

REPORT INFORMATION
  Report Type: 
  Country: US (occurrence: US)
  Receive Date: 20120312
  Receipt Date: 20120907
  Transmission Date: 20130627
  Serious: Yes (Other)
  Sender: FDA-Public Use
  Company Number: PHHY2010US44736

PATIENT
  Age: 69 Year
  Sex: Female
  Weight: 68 kg

DRUGS (24)
  1. TASIGNA [Suspect]
     Indication: ACUTE MYELOID LEUKAEMIA
     Dosage: 400 mg, BID
     Route: 048
     Dates: end: 200604
  2. TASIGNA [Suspect]
     Dosage: 400 mg, BID
     Route: 048
     Dates: start: 20100227
  3. TASIGNA [Suspect]
     Dosage: 400 mg, daily
     Route: 048
     Dates: start: 200604
  4. TASIGNA [Suspect]
     Dosage: 400 mg, daily
     Route: 048
     Dates: start: 20100207
  5. TASIGNA [Suspect]
     Dosage: 200 mg, BID
     Route: 048
     Dates: start: 20100615
  6. TASIGNA [Suspect]
     Dosage: 150 mg, BID
     Route: 048
     Dates: start: 20120110
  7. TASIGNA [Suspect]
     Dosage: 150 mg, BID
     Route: 048
     Dates: start: 20110719
  8. CLONAZEPAM [Concomitant]
  9. FLUOXETINE [Concomitant]
  10. PROZAC [Concomitant]
  11. VITAMINS WITH MINERALS [Concomitant]
  12. NAPROXEN [Concomitant]
  13. FLUTICASONE PROPIONATE [Concomitant]
  14. ALEVE [Concomitant]
  15. SOMA [Concomitant]
  16. OXYCONTIN [Concomitant]
  17. VITAMIN B12 [Concomitant]
  18. VITAMIN C [Concomitant]
  19. VITAMIN B1 [Concomitant]
  20. BACLOFEN [Concomitant]
  21. FISH OIL [Concomitant]
  22. NEURONTIN [Concomitant]
  23. DEMEROL [Concomitant]
  24. VERSED [Concomitant]

REACTIONS (13)
  - MINIMAL DIVERTICULAR CHANGE IN SIGMOID COLON [Recovering/Resolving]
  - Haematochezia [Recovering/Resolving]
  - Gastrointestinal haemorrhage [Recovering/Resolving]
  - Faecal incontinence [Unknown]
  - Abdominal pain upper [Unknown]
  - Flatulence [Unknown]
  - Diarrhoea [Recovered/Resolved]
  - Pancreatitis [Unknown]
  - Fatigue [Not Recovered/Not Resolved]
  - Lethargy [Not Recovered/Not Resolved]
  - Arthritis [Not Recovered/Not Resolved]
  - Depression [Not Recovered/Not Resolved]
  - Pelvic pain [Unknown]
